FAERS Safety Report 5988731-3 (Version None)
Quarter: 2008Q4

REPORT INFORMATION
  Report Type: 
  Country: None (occurrence: None)
  Receive Date: 20081210
  Receipt Date: 20081202
  Transmission Date: 20090506
  Serious: Yes (Other)
  Sender: FDA-Public Use
  Company Number: PHEH2008US10184

PATIENT
  Sex: Female
  Weight: 62.132 kg

DRUGS (8)
  1. RECLAST [Suspect]
     Dosage: 5 MG, ONCE/SINGLE
     Dates: start: 20081020, end: 20081020
  2. INDAPAMIDE [Suspect]
     Dosage: UNK, UNK
     Dates: end: 20081028
  3. AMILORIDE HYDROCHLORIDE [Suspect]
     Dosage: UNK, UNK
     Dates: end: 20081028
  4. IBUPROFEN TABLETS [Suspect]
     Dosage: 400 MG IN EVERY AM, 200 MG IN EVERY PM
     Dates: end: 20081110
  5. NAPROXEN [Suspect]
     Dosage: 440 MG IN EVERY AM, 220 MG IN EVERY PM
     Dates: end: 20081110
  6. DIOVAN [Concomitant]
     Dosage: 160 MG, UNK
  7. CALCIUM WITH VITAMIN D [Concomitant]
     Dosage: UNK
     Dates: end: 20081029
  8. LOVASTATIN [Concomitant]
     Dosage: 40 MG, BID

REACTIONS (4)
  - BLOOD CREATININE INCREASED [None]
  - CULTURE URINE POSITIVE [None]
  - GLOMERULAR FILTRATION RATE DECREASED [None]
  - URINARY TRACT INFECTION [None]
